FAERS Safety Report 21244792 (Version 7)
Quarter: 2022Q4

REPORT INFORMATION
  Report Type: Report from Study
  Country: US (occurrence: US)
  Receive Date: 20220823
  Receipt Date: 20221205
  Transmission Date: 20230113
  Serious: Yes (Other)
  Sender: FDA-Public Use
  Company Number: US-NOVARTISTESTPH-NVSC2022US188249

PATIENT
  Age: 47 Year
  Sex: Female

DRUGS (4)
  1. COSENTYX [Suspect]
     Active Substance: SECUKINUMAB
     Indication: Psoriasis
     Dosage: 300 MG, QW
     Route: 065
     Dates: start: 20220818
  2. COSENTYX [Suspect]
     Active Substance: SECUKINUMAB
     Dosage: 300 MG, QW
     Route: 058
  3. COSENTYX [Suspect]
     Active Substance: SECUKINUMAB
     Dosage: 300 MG, QMO
     Route: 058
     Dates: start: 20220922
  4. COSENTYX [Suspect]
     Active Substance: SECUKINUMAB
     Dosage: 200 MG, QMO
     Route: 058
     Dates: start: 202209

REACTIONS (5)
  - Haemorrhagic diathesis [Not Recovered/Not Resolved]
  - Influenza like illness [Unknown]
  - Contusion [Recovered/Resolved]
  - Oral herpes [Unknown]
  - Incorrect dose administered [Unknown]

NARRATIVE: CASE EVENT DATE: 20220822
